FAERS Safety Report 24825524 (Version 1)
Quarter: 2025Q1

REPORT INFORMATION
  Report Type: Spontaneous
  Country: US (occurrence: US)
  Receive Date: 20250109
  Receipt Date: 20250109
  Transmission Date: 20250408
  Serious: Yes (Other)
  Sender: PFIZER
  Company Number: US-PFIZER INC-202200251954

PATIENT
  Age: 73 Year
  Sex: Female
  Weight: 87.528 kg

DRUGS (5)
  1. XELJANZ XR [Suspect]
     Active Substance: TOFACITINIB CITRATE
     Indication: Rheumatoid arthritis
     Dosage: 11 MG, 1X/DAY
     Dates: start: 2018
  2. LEFLUNOMIDE [Concomitant]
     Active Substance: LEFLUNOMIDE
     Dates: start: 2008
  3. LOSARTAN [Concomitant]
     Active Substance: LOSARTAN
     Dates: start: 2019
  4. METOPROLOL [Concomitant]
     Active Substance: METOPROLOL
     Dates: start: 2018
  5. ROSUVASTATIN [Concomitant]
     Active Substance: ROSUVASTATIN
     Dates: start: 2020

REACTIONS (3)
  - Lower limb fracture [Unknown]
  - Shoulder fracture [Unknown]
  - Accident [Unknown]

NARRATIVE: CASE EVENT DATE: 20241116
